FAERS Safety Report 9592860 (Version 1)
Quarter: 2013Q4

REPORT INFORMATION
  Report Type: Spontaneous
  Country: GB (occurrence: GB)
  Receive Date: 20131004
  Receipt Date: 20131004
  Transmission Date: 20140711
  Serious: Yes (Disabling, Other)
  Sender: FDA-Public Use
  Company Number: GB-NOVOPROD-388722

PATIENT
  Age: 60 Year
  Sex: Male
  Weight: 108 kg

DRUGS (19)
  1. VICTOZA [Suspect]
     Indication: DIABETES MELLITUS
     Dosage: 1.2 MG, QD
     Route: 058
     Dates: start: 20130328
  2. ATORVASTATIN [Concomitant]
     Dosage: 40 MG, QD
  3. BENDROFLUMETHIAZIDE [Concomitant]
     Dosage: 2.5 MG, QD
  4. BISOPROLOL [Concomitant]
     Dosage: 10 MG, QD
  5. CLOPIDOGREL [Concomitant]
     Dosage: 75 MG, QD
  6. DULOXETINE [Concomitant]
     Dosage: 60 MG, QD
  7. FRUSEMIDE                          /00032601/ [Concomitant]
     Dosage: 40 MG, QD
  8. GLICLAZIDE [Concomitant]
     Dosage: 120 MG, BID
  9. GLYCERYL TRINITRATE [Concomitant]
     Dosage: PRN
  10. INSULIN GLARGINE [Concomitant]
     Dosage: 45 IU, QD
  11. IVABRADINE [Concomitant]
     Dosage: 5 MG, QD
  12. LEVOTHYROXINE [Concomitant]
     Dosage: 50 ?G, QD
  13. METFORMIN [Concomitant]
     Dosage: 850 MG, TID
  14. PREGABALIN [Concomitant]
     Dosage: 150 MG, QD
  15. RAMIPRIL [Concomitant]
     Dosage: 10 MG, QD
  16. RANITIDINE [Concomitant]
     Dosage: 150 MG, BID
  17. SALBUTAMOL [Concomitant]
     Dosage: PRN
  18. VALSARTAN [Concomitant]
     Dosage: 40 MG, QD
  19. ISOSORBIDE 5-MONONITRATO GEN MED [Concomitant]
     Dosage: 60 MG, QD

REACTIONS (3)
  - Muscle atrophy [Not Recovered/Not Resolved]
  - Neuropathy peripheral [Not Recovered/Not Resolved]
  - Muscular weakness [Not Recovered/Not Resolved]
